FAERS Safety Report 20774760 (Version 1)
Quarter: 2022Q2

REPORT INFORMATION
  Report Type: Spontaneous
  Country: US (occurrence: US)
  Receive Date: 20220502
  Receipt Date: 20220502
  Transmission Date: 20220720
  Serious: No
  Sender: FDA-Public Use
  Company Number: US-ABBVIE-21K-163-3964923-00

PATIENT
  Sex: Male
  Weight: 58.566 kg

DRUGS (2)
  1. CREON [Suspect]
     Active Substance: PANCRELIPASE AMYLASE\PANCRELIPASE LIPASE\PANCRELIPASE PROTEASE
     Indication: Pancreatic failure
     Dosage: 3 CAPSULES WITH MEAL, 1 CAPSULE WITH SNACK
     Route: 048
     Dates: start: 202103, end: 20210622
  2. CREON [Suspect]
     Active Substance: PANCRELIPASE AMYLASE\PANCRELIPASE LIPASE\PANCRELIPASE PROTEASE
     Dosage: 2 CAPSULES WITH MEAL, 1 CAPSULE WITH SNACK
     Route: 048
     Dates: start: 20210622

REACTIONS (3)
  - Weight decreased [Unknown]
  - Dysphagia [Unknown]
  - Abnormal faeces [Unknown]

NARRATIVE: CASE EVENT DATE: 20210101
